FAERS Safety Report 12154904 (Version 1)
Quarter: 2016Q1

REPORT INFORMATION
  Report Type: Spontaneous
  Country: US (occurrence: None)
  Receive Date: 20160304
  Receipt Date: 20160304
  Transmission Date: 20160526
  Serious: No
  Sender: FDA-Public Use
  Company Number: None

PATIENT
  Age: 51 Year
  Sex: Female

DRUGS (1)
  1. NEXAVAR [Suspect]
     Active Substance: SORAFENIB
     Indication: THYROID CANCER
     Dosage: 200 MG, TWICE A DAY, BY MOUTH
     Dates: start: 20150729

REACTIONS (2)
  - Impaired work ability [None]
  - Abasia [None]

NARRATIVE: CASE EVENT DATE: 20160301
